FAERS Safety Report 8165736-8 (Version None)
Quarter: 2012Q1

REPORT INFORMATION
  Report Type: 
  Country: None (occurrence: None)
  Receive Date: 20120227
  Receipt Date: 20110131
  Transmission Date: 20120608
  Serious: No
  Sender: FDA-Public Use
  Company Number: US-MYLANLABS-2011S1000712

PATIENT
  Age: 45 Year
  Sex: Female

DRUGS (2)
  1. ACETAZOLAMIDE [Concomitant]
  2. AMNESTEEM [Suspect]
     Indication: ACNE
     Dates: start: 20101213, end: 20110107

REACTIONS (3)
  - INTRACRANIAL PRESSURE INCREASED [None]
  - VISUAL IMPAIRMENT [None]
  - HEADACHE [None]
